FAERS Safety Report 8311202-6 (Version None)
Quarter: 2012Q2

REPORT INFORMATION
  Report Type: 
  Country: None (occurrence: None)
  Receive Date: 20120425
  Receipt Date: 20120411
  Transmission Date: 20120825
  Serious: Yes (Hospitalization)
  Sender: FDA-Public Use
  Company Number: FR-B.I. PHARMACEUTICALS,INC./RIDGEFIELD-2012-FF-00444FF

PATIENT
  Sex: Female
  Weight: 65 kg

DRUGS (8)
  1. CORDARONE [Concomitant]
     Dosage: 200 MG
     Route: 048
     Dates: start: 20060101
  2. LORAZEPAM [Concomitant]
     Dosage: 2 DAILY IF REQUIRED
     Route: 048
  3. PRADAXA [Suspect]
     Indication: CEREBROVASCULAR ACCIDENT PROPHYLAXIS
     Dosage: 150 MG
     Route: 048
     Dates: start: 20120101, end: 20120328
  4. PANTOPRAZOLE [Concomitant]
     Dosage: 40 MG
     Route: 048
  5. LOSARTAN POTASSIUM [Concomitant]
     Dosage: 50 MG
     Route: 048
  6. EFFEXOR [Concomitant]
     Dosage: 150 MG
     Route: 048
  7. BISOPROLOL FUMARATE [Concomitant]
     Dosage: 10 MG
     Route: 048
     Dates: start: 20110101
  8. PRADAXA [Suspect]
     Indication: ATRIAL FIBRILLATION

REACTIONS (2)
  - DRUG INEFFECTIVE [None]
  - ATRIAL THROMBOSIS [None]
